FAERS Safety Report 6380701-9 (Version None)
Quarter: 2009Q3

REPORT INFORMATION
  Report Type: 
  Country: None (occurrence: None)
  Receive Date: 20090929
  Receipt Date: 20090921
  Transmission Date: 20100115
  Serious: Yes (Hospitalization)
  Sender: FDA-Public Use
  Company Number: US-KINGPHARMUSA00001-K200901160

PATIENT

DRUGS (1)
  1. SEPTRA [Suspect]

REACTIONS (3)
  - HYPOGLYCAEMIA [None]
  - LEUKOPENIA [None]
  - URINARY RETENTION [None]
